FAERS Safety Report 14608426 (Version 1)
Quarter: 2018Q1

REPORT INFORMATION
  Report Type: Spontaneous
  Country: GB (occurrence: GB)
  Receive Date: 20180307
  Receipt Date: 20180307
  Transmission Date: 20180509
  Serious: Yes (Hospitalization)
  Sender: FDA-Public Use
  Company Number: GB-BIOGEN-2018BI00534852

PATIENT
  Sex: Female

DRUGS (1)
  1. TECFIDERA [Suspect]
     Active Substance: DIMETHYL FUMARATE
     Indication: PRODUCT USED FOR UNKNOWN INDICATION
     Route: 048
     Dates: start: 20150819

REACTIONS (7)
  - Functional gastrointestinal disorder [Unknown]
  - Pain [Unknown]
  - Paraplegia [Unknown]
  - Bladder dysfunction [Unknown]
  - Limb discomfort [Unknown]
  - Spinal disorder [Unknown]
  - Multiple sclerosis relapse [Unknown]
